FAERS Safety Report 10349125 (Version 1)
Quarter: 2014Q3

REPORT INFORMATION
  Report Type: Spontaneous
  Country: GB (occurrence: GB)
  Receive Date: 20140730
  Receipt Date: 20140730
  Transmission Date: 20150326
  Serious: Yes (Other)
  Sender: FDA-Public Use
  Company Number: PHHY2014GB090318

PATIENT
  Sex: Male

DRUGS (1)
  1. MIRTAZAPINE. [Suspect]
     Active Substance: MIRTAZAPINE
     Dosage: 1 DF, QD
     Route: 065

REACTIONS (4)
  - Depressed mood [Unknown]
  - Mental status changes [Unknown]
  - Visual acuity reduced [Unknown]
  - Road traffic accident [Unknown]
